FAERS Safety Report 8747217 (Version 2)
Quarter: 2013Q3

REPORT INFORMATION
  Report Type: Report from Study
  Country: CA (occurrence: CA)
  Receive Date: 20120827
  Receipt Date: 20130715
  Transmission Date: 20140515
  Serious: Yes (Hospitalization)
  Sender: FDA-Public Use
  Company Number: CA-JNJFOC-20120810730

PATIENT
  Age: 64 Year
  Sex: Female
  Weight: 56.3 kg

DRUGS (1)
  1. REMICADE [Suspect]
     Indication: CROHN^S DISEASE
     Route: 042
     Dates: start: 20050528, end: 201208

REACTIONS (2)
  - Abscess [Unknown]
  - Intestinal resection [Unknown]
